FAERS Safety Report 15099742 (Version 2)
Quarter: 2018Q3

REPORT INFORMATION
  Report Type: Spontaneous
  Country: US (occurrence: US)
  Receive Date: 20180702
  Receipt Date: 20180906
  Transmission Date: 20181010
  Serious: No
  Sender: FDA-Public Use
  Company Number: US-ASTRAZENECA-2018SE76943

PATIENT
  Age: 18560 Day
  Sex: Female
  Weight: 65.3 kg

DRUGS (3)
  1. TRAJENTA [Concomitant]
     Active Substance: LINAGLIPTIN
     Indication: TYPE 2 DIABETES MELLITUS
     Route: 065
  2. DEFLAZACORT [Concomitant]
     Active Substance: DEFLAZACORT
     Indication: TYPE 2 DIABETES MELLITUS
     Route: 065
  3. BYDUREON BCISE [Suspect]
     Active Substance: EXENATIDE
     Indication: TYPE 2 DIABETES MELLITUS
     Route: 058
     Dates: start: 20180608

REACTIONS (13)
  - Pruritus [Unknown]
  - Wrong technique in device usage process [Unknown]
  - Injection site nodule [Unknown]
  - Injection site warmth [Unknown]
  - Injection site pruritus [Unknown]
  - Malaise [Unknown]
  - Nausea [Unknown]
  - Injection site haemorrhage [Unknown]
  - Underdose [Unknown]
  - Injection site scab [Not Recovered/Not Resolved]
  - Injection site inflammation [Unknown]
  - Fatigue [Unknown]
  - Injection site pain [Unknown]

NARRATIVE: CASE EVENT DATE: 20180608
